FAERS Safety Report 16003405 (Version 1)
Quarter: 2019Q1

REPORT INFORMATION
  Report Type: Spontaneous
  Country: US (occurrence: US)
  Receive Date: 20190225
  Receipt Date: 20190225
  Transmission Date: 20190418
  Serious: Yes (Other)
  Sender: FDA-Public Use
  Company Number: US-TORRENT-00007705

PATIENT
  Sex: Male
  Weight: 1 kg

DRUGS (7)
  1. KETAMINE [Suspect]
     Active Substance: KETAMINE
     Indication: PAIN MANAGEMENT
     Dosage: KETAMINE INFUSION AT 10 MG/H
     Route: 064
  2. DULOXETINE. [Suspect]
     Active Substance: DULOXETINE
     Indication: PAIN MANAGEMENT
     Dosage: UNKNOWN
     Route: 064
  3. HYDROMORPHONE [Suspect]
     Active Substance: HYDROMORPHONE
     Indication: PAIN MANAGEMENT
     Dosage: HYDROMORPHONE 8 MG EXTENDED RELEASE ONCE A DAY
     Route: 064
  4. DIPHENHYDRAMINE. [Suspect]
     Active Substance: DIPHENHYDRAMINE
     Indication: PAIN MANAGEMENT
     Dosage: DIPHENHYDRAMINE 25 MG 4 TIMES A DAY
     Route: 064
  5. METHADONE [Suspect]
     Active Substance: METHADONE HYDROCHLORIDE
     Indication: PAIN MANAGEMENT
     Dosage: METHADONE 10 MG TWICE A DAY
     Route: 064
  6. ACETAMINOPHEN. [Suspect]
     Active Substance: ACETAMINOPHEN
     Indication: PAIN MANAGEMENT
     Dosage: ACETAMINOPHEN 625 MG 4 TIMES A DAY
     Route: 064
  7. OXYCODONE [Suspect]
     Active Substance: OXYCODONE
     Indication: PAIN MANAGEMENT
     Dosage: UNKNOWN
     Route: 064

REACTIONS (3)
  - Low birth weight baby [Unknown]
  - Premature baby [Unknown]
  - Foetal exposure during pregnancy [Unknown]
